FAERS Safety Report 8436176-9 (Version None)
Quarter: 2012Q2

REPORT INFORMATION
  Report Type: 
  Country: None (occurrence: None)
  Receive Date: 20120614
  Receipt Date: 20120612
  Transmission Date: 20120825
  Serious: Yes (Other)
  Sender: FDA-Public Use
  Company Number: GB-PFIZER INC-2012140806

PATIENT
  Age: 36 Year
  Sex: Female

DRUGS (1)
  1. VARENICLINE TARTRATE [Suspect]
     Indication: SMOKING CESSATION THERAPY
     Dosage: UNK
     Route: 048
     Dates: start: 20120511, end: 20120522

REACTIONS (4)
  - CHEILITIS [None]
  - PAIN [None]
  - STEVENS-JOHNSON SYNDROME [None]
  - MALAISE [None]
